FAERS Safety Report 8283659-0 (Version None)
Quarter: 2012Q2

REPORT INFORMATION
  Report Type: 
  Country: None (occurrence: None)
  Receive Date: 20120413
  Receipt Date: 20120405
  Transmission Date: 20120825
  Serious: Yes (Hospitalization, Other)
  Sender: FDA-Public Use
  Company Number: AT-AMGEN-UK372526

PATIENT
  Age: 74 Year
  Sex: Male
  Weight: 74 kg

DRUGS (13)
  1. XGEVA [Suspect]
     Indication: METASTASES TO BONE
     Dosage: UNK UNK, Q4WK
     Route: 058
     Dates: start: 20070802, end: 20091016
  2. PREDNISOLONE [Concomitant]
     Dosage: 5 MG, QD
     Route: 048
     Dates: start: 20080219
  3. FRAGMIN [Concomitant]
  4. LOVENOX [Concomitant]
     Dosage: 60 MG, QD
     Route: 058
     Dates: start: 20080115
  5. ALLOSTAD [Concomitant]
     Dosage: 50 MG, QD
     Route: 048
  6. BISOPROLOL FUMARATE [Concomitant]
     Dosage: 5 MG, QD
     Route: 048
  7. PANTOPRAZOLE SODIUM [Concomitant]
     Dosage: 40 MG, QD
     Route: 048
     Dates: start: 20071217
  8. AMLODIPINE [Concomitant]
     Dosage: 5 MG, QD
     Route: 048
  9. LEGALON [Concomitant]
     Dosage: 70 MG, QD
     Route: 048
  10. IRON SULFATETHIAMIN COMPOUND TAB [Concomitant]
     Dosage: UNK UNK, UNK
     Dates: start: 20080805
  11. INDAPAMIDE [Concomitant]
     Dosage: 15 MG, QD
     Route: 048
  12. DIGIMERCK [Concomitant]
  13. FOLIC ACID [Concomitant]
     Dosage: UNK UNK, UNK
     Dates: start: 20080805

REACTIONS (1)
  - OSTEONECROSIS [None]
